FAERS Safety Report 20127982 (Version 1)
Quarter: 2021Q4

REPORT INFORMATION
  Report Type: Spontaneous
  Country: US (occurrence: None)
  Receive Date: 20211129
  Receipt Date: 20211129
  Transmission Date: 20220303
  Serious: No
  Sender: FDA-Public Use
  Company Number: US-ROCHE-2763966

PATIENT
  Age: 39 Year
  Sex: Male

DRUGS (6)
  1. HERCEPTIN [Suspect]
     Active Substance: TRASTUZUMAB
     Indication: Oesophageal carcinoma
     Route: 065
     Dates: start: 202011
  2. HERCEPTIN [Suspect]
     Active Substance: TRASTUZUMAB
     Indication: Metastases to meninges
  3. XELODA [Suspect]
     Active Substance: CAPECITABINE
     Indication: Oesophageal carcinoma
     Route: 065
     Dates: start: 202011
  4. XELODA [Suspect]
     Active Substance: CAPECITABINE
     Indication: Metastases to meninges
  5. TUKYSA [Concomitant]
     Active Substance: TUCATINIB
     Indication: Oesophageal carcinoma
     Dates: start: 202011
  6. TUKYSA [Concomitant]
     Active Substance: TUCATINIB
     Indication: Metastases to meninges

REACTIONS (3)
  - Intentional product use issue [Unknown]
  - Off label use [Unknown]
  - No adverse event [Unknown]
